FAERS Safety Report 7338028-4 (Version None)
Quarter: 2011Q1

REPORT INFORMATION
  Report Type: 
  Country: None (occurrence: None)
  Receive Date: 20110308
  Receipt Date: 20110222
  Transmission Date: 20110831
  Serious: Yes (Hospitalization)
  Sender: FDA-Public Use
  Company Number: PHHY2011US14586

PATIENT
  Sex: Female

DRUGS (5)
  1. ATENOLOL [Concomitant]
  2. PAROXETINE HYDROCHLORIDE [Concomitant]
  3. ISOSORBIDE MN [Concomitant]
  4. AMLODIPINE [Concomitant]
  5. DIOVAN HCT [Suspect]
     Dosage: 160/25 MG ONE PER DAY

REACTIONS (1)
  - MICTURITION DISORDER [None]
